FAERS Safety Report 10244563 (Version 1)
Quarter: 2014Q2

REPORT INFORMATION
  Report Type: Spontaneous
  Country: US (occurrence: US)
  Receive Date: 20140618
  Receipt Date: 20140618
  Transmission Date: 20141212
  Serious: No
  Sender: FDA-Public Use
  Company Number: US-BAYER-2014-082480

PATIENT
  Age: 64 Year
  Sex: Female

DRUGS (8)
  1. ALEVE CAPLET [Suspect]
     Indication: ARTHRALGIA
     Dosage: UNK UNK, PRN
     Route: 048
  2. HUMIRA [Suspect]
     Indication: COLITIS ULCERATIVE
     Dosage: UNK
     Route: 058
     Dates: start: 20131126
  3. IMURAN [Suspect]
     Indication: COLITIS ULCERATIVE
     Dosage: UNK
     Route: 065
     Dates: end: 20140114
  4. MESALAMINE [Concomitant]
     Indication: COLITIS ULCERATIVE
     Dosage: 375 MG, QID
     Route: 048
  5. VENTOLIN [Concomitant]
     Indication: ASTHMA
     Dosage: UNK UNK, PRN
  6. VITAMIN C [Concomitant]
     Indication: PRODUCT USED FOR UNKNOWN INDICATION
     Dosage: UNK
  7. IRON [Concomitant]
     Indication: ANAEMIA
     Dosage: 2 DF, QD
  8. CALCIUM [Concomitant]
     Indication: PRODUCT USED FOR UNKNOWN INDICATION
     Dosage: 1 DF, QD

REACTIONS (7)
  - Asthenia [Unknown]
  - Fatigue [Unknown]
  - Asthenia [Unknown]
  - Nausea [None]
  - Drug ineffective [Unknown]
  - Arthralgia [None]
  - Pain in extremity [None]
